FAERS Safety Report 16704824 (Version 1)
Quarter: 2019Q3

REPORT INFORMATION
  Report Type: Spontaneous
  Country: DE (occurrence: DE)
  Receive Date: 20190814
  Receipt Date: 20190814
  Transmission Date: 20191004
  Serious: Yes (Other)
  Sender: FDA-Public Use
  Company Number: PHHY2019DE189140

PATIENT
  Sex: Female
  Weight: 72 kg

DRUGS (1)
  1. ROSU HEXAL [Suspect]
     Active Substance: ROSUVASTATIN
     Indication: PRODUCT USED FOR UNKNOWN INDICATION
     Dosage: UNK
     Route: 065
     Dates: start: 20150801

REACTIONS (1)
  - Muscle disorder [Unknown]

NARRATIVE: CASE EVENT DATE: 20170801
